FAERS Safety Report 6113026-7 (Version None)
Quarter: 2009Q1

REPORT INFORMATION
  Report Type: 
  Country: None (occurrence: None)
  Receive Date: 20090312
  Receipt Date: 20090309
  Transmission Date: 20090719
  Serious: Yes (Life-Threatening)
  Sender: FDA-Public Use
  Company Number: B0564118A

PATIENT
  Age: 74 Year
  Sex: Male

DRUGS (8)
  1. AUGMENTIN '125' [Suspect]
     Dosage: 1G SINGLE DOSE
     Route: 048
     Dates: start: 20081001, end: 20081001
  2. SYMBICORT [Concomitant]
     Dosage: 2PUFF PER DAY
     Route: 055
  3. PNEUMOREL [Concomitant]
     Route: 065
  4. MUCOMYST [Concomitant]
     Route: 065
  5. ASPIRIN [Concomitant]
     Route: 065
  6. OMEPRAZOLE [Concomitant]
     Route: 065
  7. SEROPLEX [Concomitant]
     Route: 065
  8. SPECIAFOLDINE [Concomitant]
     Route: 065

REACTIONS (4)
  - ANAPHYLACTIC SHOCK [None]
  - LOSS OF CONSCIOUSNESS [None]
  - MALAISE [None]
  - STOMATITIS [None]
